FAERS Safety Report 17054271 (Version 2)
Quarter: 2019Q4

REPORT INFORMATION
  Report Type: Spontaneous
  Country: US (occurrence: US)
  Receive Date: 20191120
  Receipt Date: 20191128
  Transmission Date: 20200122
  Serious: No
  Sender: FDA-Public Use
  Company Number: NVSC2019US040548

PATIENT
  Age: 67 Year
  Sex: Female
  Weight: 86.18 kg

DRUGS (1)
  1. RANITIDINE. [Suspect]
     Active Substance: RANITIDINE
     Indication: HEADACHE
     Dosage: 150 MG, QD
     Route: 048
     Dates: start: 19990101, end: 20191007

REACTIONS (2)
  - Vitreous floaters [Unknown]
  - Headache [Unknown]

NARRATIVE: CASE EVENT DATE: 20191007
